FAERS Safety Report 4277959-9 (Version None)
Quarter: 2004Q1

REPORT INFORMATION
  Report Type: 
  Country: None (occurrence: None)
  Receive Date: 20040121
  Receipt Date: 20040108
  Transmission Date: 20041129
  Serious: Yes (Hospitalization)
  Sender: FDA-Public Use
  Company Number: 22574

PATIENT
  Age: 61 Year
  Sex: Female

DRUGS (2)
  1. FLECAINIDE ACETATE [Suspect]
     Indication: ATRIAL FIBRILLATION
     Dosage: 200 MG (100 MG, 2 IN 1 DAY(S) ORAL
     Route: 048
     Dates: start: 20020813, end: 20020829
  2. BISOPROLOL FUMARATE [Concomitant]

REACTIONS (7)
  - ABDOMINAL PAIN UPPER [None]
  - BLOOD PRESSURE DIASTOLIC DECREASED [None]
  - HYPERHIDROSIS [None]
  - MALAISE [None]
  - PALLOR [None]
  - SYNCOPE VASOVAGAL [None]
  - VERTIGO [None]
